FAERS Safety Report 10174874 (Version 1)
Quarter: 2014Q2

REPORT INFORMATION
  Report Type: Spontaneous
  Country: US (occurrence: None)
  Receive Date: 20140416
  Receipt Date: 20140416
  Transmission Date: 20141212
  Serious: Yes (Other)
  Sender: FDA-Public Use
  Company Number: 163-POMAL-13124556

PATIENT
  Age: 76 Year
  Sex: Female

DRUGS (2)
  1. POMALYST [Suspect]
     Indication: PLASMA CELL MYELOMA
     Route: 048
     Dates: start: 201302
  2. PLATELETS (PLATELETS) [Concomitant]

REACTIONS (3)
  - Cardiac failure congestive [None]
  - Thrombocytopenia [None]
  - Plasma cell myeloma [None]
